FAERS Safety Report 17322436 (Version 1)
Quarter: 2020Q1

REPORT INFORMATION
  Report Type: Spontaneous
  Country: CA (occurrence: CA)
  Receive Date: 20200127
  Receipt Date: 20200127
  Transmission Date: 20200409
  Serious: Yes (Other)
  Sender: FDA-Public Use
  Company Number: CA-AUROBINDO-AUR-APL-2020-003830

PATIENT
  Sex: Male
  Weight: 113 kg

DRUGS (8)
  1. ENBREL [Concomitant]
     Active Substance: ETANERCEPT
     Indication: PRODUCT USED FOR UNKNOWN INDICATION
     Dosage: 50 MILLIGRAM, 2 EVERY 1 WEEK
     Route: 058
  2. NEORAL [Suspect]
     Active Substance: CYCLOSPORINE
     Dosage: 150 MILLIGRAM, ONCE A DAY
     Route: 048
  3. BISOPROLOL [Suspect]
     Active Substance: BISOPROLOL
     Indication: PRODUCT USED FOR UNKNOWN INDICATION
     Dosage: 5 MILLIGRAM, ONCE A DAY
     Route: 048
  4. NEORAL [Suspect]
     Active Substance: CYCLOSPORINE
     Indication: PSORIASIS
     Dosage: 150 MILLIGRAM, TWO TIMES A DAY
     Route: 048
  5. REMICADE [Concomitant]
     Active Substance: INFLIXIMAB
     Indication: PRODUCT USED FOR UNKNOWN INDICATION
     Dosage: UNK
     Route: 065
  6. AMLODIPINE [Suspect]
     Active Substance: AMLODIPINE BESYLATE
     Indication: PRODUCT USED FOR UNKNOWN INDICATION
     Dosage: 5 MILLIGRAM
     Route: 048
  7. HUMIRA [Concomitant]
     Active Substance: ADALIMUMAB
     Indication: PRODUCT USED FOR UNKNOWN INDICATION
     Dosage: UNK
     Route: 065
  8. STELARA [Concomitant]
     Active Substance: USTEKINUMAB
     Indication: PRODUCT USED FOR UNKNOWN INDICATION
     Dosage: UNK
     Route: 065

REACTIONS (15)
  - Scab [Unknown]
  - Skin haemorrhage [Unknown]
  - Skin plaque [Unknown]
  - Blood creatinine increased [Unknown]
  - Thyroid hormones decreased [Unknown]
  - Blood triglycerides increased [Unknown]
  - Psoriasis [Unknown]
  - Blood urea increased [Unknown]
  - Burning sensation [Unknown]
  - Pruritus [Unknown]
  - Apolipoprotein B increased [Unknown]
  - Hypertension [Unknown]
  - Pain [Unknown]
  - Psoriatic arthropathy [Unknown]
  - Dry skin [Unknown]
